FAERS Safety Report 9751666 (Version 1)
Quarter: 2013Q4

REPORT INFORMATION
  Report Type: Report from Study
  Country: US (occurrence: US)
  Receive Date: 20131213
  Receipt Date: 20131213
  Transmission Date: 20140711
  Serious: Yes (Death, Hospitalization)
  Sender: FDA-Public Use
  Company Number: US-ROCHE-1308059

PATIENT
  Sex: Male

DRUGS (11)
  1. AVASTIN [Suspect]
     Indication: HEPATOCELLULAR CARCINOMA
     Route: 042
  2. AVASTIN [Suspect]
     Indication: HYPOVOLAEMIA
  3. NEUPOGEN [Concomitant]
     Route: 065
  4. GEMZAR [Concomitant]
     Route: 065
  5. ZOFRAN [Concomitant]
     Dosage: RECIVED ON 05/NOV/2010
     Route: 065
  6. DECADRON [Concomitant]
     Route: 065
  7. ZANTAC [Concomitant]
     Route: 065
  8. OXALIPLATIN [Concomitant]
  9. ZOMETA [Concomitant]
     Route: 065
  10. CALCIUM GLUCONATE [Concomitant]
     Route: 065
  11. MAGNESIUM SULPHATE [Concomitant]
     Route: 065

REACTIONS (3)
  - Death [Fatal]
  - Chest pain [Unknown]
  - Oedema [Unknown]
